FAERS Safety Report 16614998 (Version 1)
Quarter: 2019Q3

REPORT INFORMATION
  Report Type: Spontaneous
  Country: US (occurrence: US)
  Receive Date: 20190723
  Receipt Date: 20190723
  Transmission Date: 20191004
  Serious: No
  Sender: FDA-Public Use
  Company Number: US-PFIZER INC-2019312725

PATIENT
  Age: 71 Year
  Sex: Female

DRUGS (2)
  1. NYSTATIN. [Suspect]
     Active Substance: NYSTATIN
     Dosage: UNK
  2. ZITHROMAX [Suspect]
     Active Substance: AZITHROMYCIN DIHYDRATE
     Dosage: UNK

REACTIONS (3)
  - Nausea [Unknown]
  - Drug hypersensitivity [Unknown]
  - Vomiting [Unknown]
